FAERS Safety Report 10678299 (Version 1)
Quarter: 2014Q4

REPORT INFORMATION
  Report Type: Spontaneous
  Country: CN (occurrence: None)
  Receive Date: 20141223
  Receipt Date: 20141223
  Transmission Date: 20150529
  Serious: Yes (Other)
  Sender: FDA-Public Use
  Company Number: INT_00587_2014

PATIENT

DRUGS (2)
  1. DICYCLOPLATIN [Suspect]
     Active Substance: INVESTIGATIONAL PRODUCT
     Indication: LUNG NEOPLASM MALIGNANT
     Dosage: 1X/ 3 WEEKS, (OVER 1 HOUR, UP TO 4 TO 6 CYCLES) INTRAVENOUS (NOT OTHERWISE SPECIFIED)
  2. PACLITAXEL(HQ SPECIALITY) [Suspect]
     Active Substance: PACLITAXEL
     Indication: LUNG NEOPLASM MALIGNANT
     Dosage: 1X/3 WEEKS, (OVER HOURS, UP TO 4 TO 6 CYCLES) INTRAVENOUS (NOT OTHERWISE SPECIFIED)
     Route: 042

REACTIONS (1)
  - Respiratory tract infection [None]
